FAERS Safety Report 10018735 (Version 1)
Quarter: 2014Q1

REPORT INFORMATION
  Report Type: Spontaneous
  Country: US (occurrence: None)
  Receive Date: 20140314
  Receipt Date: 20140314
  Transmission Date: 20141002
  Serious: No
  Sender: FDA-Public Use
  Company Number: None

PATIENT
  Age: 21 Year
  Sex: Female
  Weight: 95.26 kg

DRUGS (1)
  1. MIRENA IUD [Suspect]

REACTIONS (2)
  - Cervical dysplasia [None]
  - Medical device complication [None]
